FAERS Safety Report 10010696 (Version 1)
Quarter: 2014Q1

REPORT INFORMATION
  Report Type: Spontaneous
  Country: GB (occurrence: None)
  Receive Date: 20140311
  Receipt Date: 20140311
  Transmission Date: 20141002
  Serious: Yes (Congenital Anomaly, Other)
  Sender: FDA-Public Use
  Company Number: AUR-APL-2014-02602

PATIENT
  Age: 1 Hour
  Sex: Male
  Weight: 3.85 kg

DRUGS (5)
  1. QUETIAPINE (QUETIAPINE) [Suspect]
     Indication: PRODUCT USED FOR UNKNOWN INDICATION
     Route: 064
  2. ARIPIPRAZOLE (ARIPIPRAZOLE) [Suspect]
     Indication: PRODUCT USED FOR UNKNOWN INDICATION
     Route: 064
     Dates: start: 20121120, end: 20130103
  3. DULOXETINE HYDROCHLORIDE [Suspect]
     Indication: PRODUCT USED FOR UNKNOWN INDICATION
     Route: 064
  4. ZOPICLONE (ZOPICLONE) [Suspect]
     Indication: PRODUCT USED FOR UNKNOWN INDICATION
     Route: 064
  5. ZYPREXA (OLANZAPINE) [Suspect]
     Indication: PRODUCT USED FOR UNKNOWN INDICATION
     Route: 064
     Dates: start: 20130425

REACTIONS (6)
  - Maternal drugs affecting foetus [None]
  - Cleft palate [None]
  - High arched palate [None]
  - Poor sucking reflex [None]
  - Exposure during breast feeding [None]
  - Congenital anomaly [None]
